FAERS Safety Report 8861159 (Version 1)
Quarter: 2012Q4

REPORT INFORMATION
  Report Type: 
  Country: US (occurrence: US)
  Receive Date: 20121025
  Receipt Date: 20121025
  Transmission Date: 20130627
  Serious: No
  Sender: FDA-Public Use
  Company Number: US-AMGEN-USASP2012012987

PATIENT
  Age: 61 Year

DRUGS (8)
  1. ENBREL [Suspect]
     Indication: PRODUCT USED FOR UNKNOWN INDICATION
     Dosage: 50 mg, qwk
     Route: 058
  2. PLAQUENIL                          /00072602/ [Concomitant]
     Dosage: 200 mg, UNK
  3. METOPROLOL TARTRAS [Concomitant]
     Dosage: 100 mg, UNK
  4. TETRACYCLINE [Concomitant]
     Dosage: 250 mg, UNK
  5. DEXILANT [Concomitant]
     Dosage: 30 mg, UNK
  6. MULTIVITAMIN                       /00097801/ [Concomitant]
  7. ASPIRIN [Concomitant]
     Dosage: 81 mg, UNK
  8. AZOR                               /00595201/ [Concomitant]

REACTIONS (1)
  - Eye pruritus [Unknown]
